FAERS Safety Report 4488060-3 (Version None)
Quarter: 2004Q4

REPORT INFORMATION
  Report Type: 
  Country: None (occurrence: None)
  Receive Date: 20041028
  Receipt Date: 20020923
  Transmission Date: 20050328
  Serious: Yes (Hospitalization, Congenital Anomaly, Other)
  Sender: FDA-Public Use
  Company Number: SE-GLAXOSMITHKLINE-B0280724A

PATIENT
  Sex: Female
  Weight: 3.4 kg

DRUGS (2)
  1. LAMICTAL [Suspect]
     Indication: EPILEPSY
     Dates: start: 19940101
  2. VALPROATE SODIUM [Suspect]
     Indication: EPILEPSY

REACTIONS (15)
  - APGAR SCORE LOW [None]
  - CYANOSIS [None]
  - CYANOSIS NEONATAL [None]
  - DRUG EXPOSURE DURING PREGNANCY [None]
  - ILL-DEFINED DISORDER [None]
  - LENS ABNORMALITY, CONGENITAL [None]
  - MICROPHTHALMOS [None]
  - MITRAL VALVE INCOMPETENCE [None]
  - NEONATAL DISORDER [None]
  - PNEUMOTHORAX [None]
  - PREMATURE BABY [None]
  - RESPIRATORY DISORDER [None]
  - RESPIRATORY DISORDER NEONATAL [None]
  - VISUAL ACUITY REDUCED [None]
  - VISUAL DISTURBANCE [None]
